FAERS Safety Report 10088889 (Version 2)
Quarter: 2014Q2

REPORT INFORMATION
  Report Type: Report from Study
  Country: TR (occurrence: TR)
  Receive Date: 20140421
  Receipt Date: 20140422
  Transmission Date: 20141212
  Serious: Yes (Other)
  Sender: FDA-Public Use
  Company Number: PHHO2014TR005487

PATIENT
  Sex: 0

DRUGS (2)
  1. TELBIVUDINE [Suspect]
     Indication: CHRONIC HEPATITIS B
     Dosage: 600 MG, UNK
     Route: 048
     Dates: start: 20130426, end: 20140408
  2. TENOFOVIR [Suspect]
     Indication: CHRONIC HEPATITIS B
     Dosage: 245 MG, UNK
     Route: 048
     Dates: start: 20121002

REACTIONS (3)
  - Blood creatine phosphokinase increased [Unknown]
  - Fatigue [Recovered/Resolved]
  - Arthralgia [Recovered/Resolved]
